FAERS Safety Report 5248512-5 (Version None)
Quarter: 2007Q1

REPORT INFORMATION
  Report Type: 
  Country: None (occurrence: None)
  Receive Date: 20070222
  Receipt Date: 20070207
  Transmission Date: 20070707
  Serious: Yes (Other)
  Sender: FDA-Public Use
  Company Number: SPV1-2007-00742

PATIENT
  Sex: Female

DRUGS (1)
  1. PENTASA [Suspect]
     Dates: start: 20070101

REACTIONS (2)
  - HEPATIC STEATOSIS [None]
  - LABORATORY TEST ABNORMAL [None]
